FAERS Safety Report 9349978 (Version 4)
Quarter: 2013Q3

REPORT INFORMATION
  Report Type: Spontaneous
  Country: JP (occurrence: JP)
  Receive Date: 20130614
  Receipt Date: 20130830
  Transmission Date: 20140515
  Serious: Yes (Life-Threatening, Hospitalization)
  Sender: FDA-Public Use
  Company Number: PHHY2013JP060423

PATIENT
  Age: 18 Year
  Sex: Male
  Weight: 63 kg

DRUGS (3)
  1. TEGRETOL [Suspect]
     Indication: EPILEPSY
     Dosage: 400 MG, DAILY
     Route: 048
     Dates: start: 20041117
  2. EXCEGRAN [Suspect]
     Indication: EPILEPSY
     Dosage: 200 MG, DAILY
     Route: 048
     Dates: start: 200703
  3. WARFARIN [Concomitant]
     Dosage: 4 MG, UNK
     Route: 048
     Dates: start: 20130605

REACTIONS (5)
  - Venous thrombosis limb [Not Recovered/Not Resolved]
  - Pulmonary embolism [Not Recovered/Not Resolved]
  - Oedema peripheral [Unknown]
  - Tendonitis [Recovered/Resolved]
  - Abdominal pain [Unknown]
